FAERS Safety Report 12187582 (Version 2)
Quarter: 2016Q3

REPORT INFORMATION
  Report Type: Report from Study
  Country: US (occurrence: US)
  Receive Date: 20160317
  Receipt Date: 20160712
  Transmission Date: 20161109
  Serious: Yes (Hospitalization, Other)
  Sender: FDA-Public Use
  Company Number: US-GILEAD-2016-0203702

PATIENT
  Age: 75 Year
  Sex: Female

DRUGS (11)
  1. PROMETHAZINE [Concomitant]
     Active Substance: PROMETHAZINE\PROMETHAZINE HYDROCHLORIDE
  2. ADCIRCA [Concomitant]
     Active Substance: TADALAFIL
     Indication: PULMONARY HYPERTENSION
     Dosage: 20 MG, QD
  3. ALPROZOLAM [Concomitant]
     Active Substance: ALPRAZOLAM
  4. AMBRISENTAN [Suspect]
     Active Substance: AMBRISENTAN
     Indication: PULMONARY HYPERTENSION
     Dosage: 10 MG, QD
     Route: 065
     Dates: start: 20130822
  5. SPIRONOLACTON [Concomitant]
     Active Substance: SPIRONOLACTONE
  6. AMOXI-CLAVULAN                     /00852501/ [Concomitant]
     Active Substance: AMOXICILLIN\CLAVULANIC ACID
  7. BUPROPION. [Concomitant]
     Active Substance: BUPROPION
  8. TRAMADOL. [Concomitant]
     Active Substance: TRAMADOL
  9. CITALOPRAM [Concomitant]
     Active Substance: CITALOPRAM HYDROBROMIDE
  10. PANTOPRAZOLE [Concomitant]
     Active Substance: PANTOPRAZOLE SODIUM
  11. TEMAZEPAM. [Concomitant]
     Active Substance: TEMAZEPAM

REACTIONS (2)
  - Diverticulitis [Recovered/Resolved]
  - Diverticulitis [Not Recovered/Not Resolved]

NARRATIVE: CASE EVENT DATE: 20160309
